FAERS Safety Report 7971656-1 (Version None)
Quarter: 2011Q4

REPORT INFORMATION
  Report Type: 
  Country: None (occurrence: None)
  Receive Date: 20111212
  Receipt Date: 20111202
  Transmission Date: 20120403
  Serious: Yes (Hospitalization)
  Sender: FDA-Public Use
  Company Number: AT-ABBOTT-11P-009-0880351-00

PATIENT
  Sex: Female

DRUGS (6)
  1. ENTOCORT EC [Concomitant]
     Indication: CROHN'S DISEASE
     Dosage: 3-0-0 (TO DODDER)
     Route: 048
  2. COLDIMIN [Concomitant]
     Indication: PRODUCT USED FOR UNKNOWN INDICATION
     Dosage: 2-2-2
  3. HUMIRA [Suspect]
     Indication: SURGERY
  4. CHOLESTAGEL [Concomitant]
     Indication: PRODUCT USED FOR UNKNOWN INDICATION
  5. HUMIRA [Suspect]
     Indication: CROHN'S DISEASE
     Dates: start: 20100601
  6. HUMIRA [Suspect]
     Indication: PROPHYLAXIS

REACTIONS (8)
  - VENTRICULAR FIBRILLATION [None]
  - DISBACTERIOSIS [None]
  - ABDOMINAL PAIN [None]
  - GASTROINTESTINAL BACTERIAL INFECTION [None]
  - DIARRHOEA [None]
  - ACUTE MYOCARDIAL INFARCTION [None]
  - CORONARY ARTERY OCCLUSION [None]
  - FLATULENCE [None]
